FAERS Safety Report 8989523 (Version 2)
Quarter: 2013Q1

REPORT INFORMATION
  Report Type: Spontaneous
  Country: FR (occurrence: FR)
  Receive Date: 20121227
  Receipt Date: 20130124
  Transmission Date: 20140127
  Serious: Yes (Life-Threatening, Other)
  Sender: FDA-Public Use
  Company Number: FR-JNJFOC-20121212867

PATIENT
  Age: 75 Year
  Sex: Male

DRUGS (10)
  1. XARELTO [Suspect]
     Indication: CEREBROVASCULAR ACCIDENT PROPHYLAXIS
     Route: 048
     Dates: start: 20121009, end: 20121206
  2. XARELTO [Suspect]
     Indication: CEREBROVASCULAR ACCIDENT PROPHYLAXIS
     Route: 048
     Dates: start: 20121009, end: 20121206
  3. XARELTO [Suspect]
     Indication: ATRIAL FIBRILLATION
     Route: 048
     Dates: start: 20121009, end: 20121206
  4. ADANCOR [Concomitant]
     Route: 065
  5. IRBESARTAN [Concomitant]
     Route: 065
  6. BISOPROLOL [Concomitant]
     Route: 065
  7. TAHOR [Concomitant]
     Route: 065
  8. LANTUS [Concomitant]
     Route: 065
  9. APIDRA [Concomitant]
     Route: 065
  10. KARDEGIC [Concomitant]
     Route: 065

REACTIONS (2)
  - Haemolytic anaemia [Not Recovered/Not Resolved]
  - General physical health deterioration [Unknown]
